FAERS Safety Report 7144054-0 (Version None)
Quarter: 2010Q4

REPORT INFORMATION
  Report Type: 
  Country: None (occurrence: None)
  Receive Date: 20101208
  Receipt Date: 20101129
  Transmission Date: 20110411
  Serious: No
  Sender: FDA-Public Use
  Company Number: US-BIOGENIDEC-2010BI042195

PATIENT
  Age: 45 Year
  Sex: Female

DRUGS (2)
  1. AVONEX [Suspect]
     Indication: MULTIPLE SCLEROSIS
     Route: 030
     Dates: start: 20100206
  2. PAIN INJECTIONS (NOS) [Concomitant]
     Indication: NECK PAIN
     Dates: end: 20090807

REACTIONS (3)
  - EAR PAIN [None]
  - NECK PAIN [None]
  - VITAMIN D DECREASED [None]
